FAERS Safety Report 8187582-1 (Version None)
Quarter: 2012Q1

REPORT INFORMATION
  Report Type: 
  Country: None (occurrence: None)
  Receive Date: 20120306
  Receipt Date: 20120222
  Transmission Date: 20120608
  Serious: No
  Sender: FDA-Public Use
  Company Number: JP-ELI_LILLY_AND_COMPANY-JP201202006586

PATIENT

DRUGS (3)
  1. ZYPREXA [Suspect]
     Dosage: UNK
     Route: 048
  2. MAGNESIUM OXIDE [Concomitant]
     Indication: CONSTIPATION
  3. POSTERISAN [Concomitant]
     Indication: ANAL INFLAMMATION
     Dosage: UNK
     Route: 062

REACTIONS (3)
  - NASAL DRYNESS [None]
  - EPISTAXIS [None]
  - SCAB [None]
